FAERS Safety Report 19951308 (Version 3)
Quarter: 2022Q2

REPORT INFORMATION
  Report Type: Other
  Country: CA (occurrence: CA)
  Receive Date: 20211014
  Receipt Date: 20220629
  Transmission Date: 20220720
  Serious: Yes (Other)
  Sender: FDA-Public Use
  Company Number: CA-APOTEX-2021AP044019

PATIENT
  Age: 70 Year
  Sex: Male

DRUGS (7)
  1. OMEPRAZOLE [Suspect]
     Active Substance: OMEPRAZOLE
     Indication: Product used for unknown indication
     Dosage: UNK
     Route: 065
  2. COUMADIN [Suspect]
     Active Substance: WARFARIN SODIUM
     Indication: Product used for unknown indication
     Dosage: UNK
     Route: 065
  3. OMALIZUMAB [Suspect]
     Active Substance: OMALIZUMAB
     Indication: Chronic spontaneous urticaria
     Dosage: 300 MILLIGRAM
     Route: 058
  4. XOLAIR [Suspect]
     Active Substance: OMALIZUMAB
     Indication: Chronic spontaneous urticaria
     Dosage: 300 MILLIGRAM, QD
     Route: 058
  5. BENADRYL [Concomitant]
     Active Substance: DIPHENHYDRAMINE HYDROCHLORIDE
     Indication: Product used for unknown indication
     Dosage: UNK, QD
     Route: 065
  6. LIPITOR [Concomitant]
     Active Substance: ATORVASTATIN CALCIUM
     Indication: Blood cholesterol abnormal
     Dosage: 80 MILLIGRAM, QD
     Route: 048
  7. CETIRIZINE HYDROCHLORIDE [Concomitant]
     Active Substance: CETIRIZINE HYDROCHLORIDE
     Indication: Product used for unknown indication
     Dosage: 40 MILLIGRAM, QD
     Route: 048

REACTIONS (6)
  - Skin lesion [Unknown]
  - Skin cancer [Unknown]
  - Hypertension [Unknown]
  - Urticaria [Unknown]
  - Drug hypersensitivity [Unknown]
  - Heart rate decreased [Unknown]
